FAERS Safety Report 9181397 (Version 2)
Quarter: 2013Q2

REPORT INFORMATION
  Report Type: Spontaneous
  Country: US (occurrence: US)
  Receive Date: 20130322
  Receipt Date: 20130618
  Transmission Date: 20140414
  Serious: No
  Sender: FDA-Public Use
  Company Number: US-009507513-1303USA011116

PATIENT
  Age: 27 Year
  Sex: Female
  Weight: 100.23 kg

DRUGS (1)
  1. IMPLANON [Suspect]
     Indication: CONTRACEPTION
     Dosage: 1 ROD EVERY 3 YEARS
     Route: 059
     Dates: start: 20120910, end: 20130313

REACTIONS (3)
  - Implant site pruritus [Unknown]
  - Implant site urticaria [Recovering/Resolving]
  - Rash [Recovering/Resolving]
